FAERS Safety Report 14488503 (Version 2)
Quarter: 2018Q2

REPORT INFORMATION
  Report Type: Spontaneous
  Country: GB (occurrence: GB)
  Receive Date: 20180205
  Receipt Date: 20180626
  Transmission Date: 20180711
  Serious: Yes (Other)
  Sender: FDA-Public Use
  Company Number: GB-PFIZER INC-2018044616

PATIENT
  Age: 33 Year
  Sex: Female

DRUGS (8)
  1. CAMPATH [Suspect]
     Active Substance: ALEMTUZUMAB
     Indication: ALLOGENIC BONE MARROW TRANSPLANTATION THERAPY
     Dosage: UNK
     Route: 065
  2. METHYLPREDNISOLONE. [Suspect]
     Active Substance: METHYLPREDNISOLONE
     Indication: ALLOGENIC BONE MARROW TRANSPLANTATION THERAPY
     Dosage: 2 MG (2 MG/KG), UNK
  3. CAMPATH [Suspect]
     Active Substance: ALEMTUZUMAB
     Indication: ACUTE GRAFT VERSUS HOST DISEASE IN LIVER
  4. METHYLPREDNISOLONE. [Suspect]
     Active Substance: METHYLPREDNISOLONE
     Indication: ACUTE GRAFT VERSUS HOST DISEASE IN LIVER
  5. MYCOPHENOLATE MOFETIL. [Suspect]
     Active Substance: MYCOPHENOLATE MOFETIL
     Indication: ALLOGENIC BONE MARROW TRANSPLANTATION THERAPY
  6. CICLOSPORIN [Suspect]
     Active Substance: CYCLOSPORINE
     Indication: ACUTE GRAFT VERSUS HOST DISEASE IN LIVER
     Dosage: UNK
     Route: 065
  7. CICLOSPORIN [Suspect]
     Active Substance: CYCLOSPORINE
     Indication: ALLOGENIC BONE MARROW TRANSPLANTATION THERAPY
  8. MYCOPHENOLATE MOFETIL. [Suspect]
     Active Substance: MYCOPHENOLATE MOFETIL
     Indication: ACUTE GRAFT VERSUS HOST DISEASE IN LIVER
     Dosage: UNK
     Route: 065

REACTIONS (10)
  - Blood bilirubin increased [Unknown]
  - Graft versus host disease [Recovered/Resolved with Sequelae]
  - Monocyte count increased [Unknown]
  - Blood alkaline phosphatase increased [Unknown]
  - Eosinophil count decreased [Unknown]
  - Blood urea increased [Unknown]
  - Lymphocyte count decreased [Unknown]
  - Alanine aminotransferase increased [Unknown]
  - Neutrophil count increased [Unknown]
  - Drug ineffective [Unknown]

NARRATIVE: CASE EVENT DATE: 20171225
